FAERS Safety Report 20066164 (Version 2)
Quarter: 2021Q4

REPORT INFORMATION
  Report Type: Report from Study
  Country: US (occurrence: US)
  Receive Date: 20211114
  Receipt Date: 20211122
  Transmission Date: 20220304
  Serious: Yes (Other)
  Sender: FDA-Public Use
  Company Number: US-BIOGEN-2021BI01066293

PATIENT
  Age: 39 Year
  Sex: Female

DRUGS (1)
  1. VUMERITY [Suspect]
     Active Substance: DIROXIMEL FUMARATE
     Indication: Multiple sclerosis
     Route: 048

REACTIONS (9)
  - Monoplegia [Unknown]
  - Fall [Recovered/Resolved]
  - Hand fracture [Unknown]
  - COVID-19 [Unknown]
  - Asthenia [Unknown]
  - Eye contusion [Unknown]
  - Neuralgia [Unknown]
  - Product dose omission issue [Unknown]
  - Hot flush [Unknown]

NARRATIVE: CASE EVENT DATE: 20210708
